FAERS Safety Report 5333117-8 (Version None)
Quarter: 2007Q2

REPORT INFORMATION
  Report Type: 
  Country: None (occurrence: None)
  Receive Date: 20070524
  Receipt Date: 20070514
  Transmission Date: 20071010
  Serious: Yes (Disabling, Other)
  Sender: FDA-Public Use
  Company Number: IT-ELI_LILLY_AND_COMPANY-IT200705005374

PATIENT
  Age: 30 Year
  Sex: Male

DRUGS (2)
  1. ZYPREXA [Suspect]
     Indication: SCHIZOPHRENIA
     Dosage: UNK, UNK
     Dates: start: 20040101
  2. CLOZAPINE [Concomitant]
     Indication: SCHIZOPHRENIA
     Dates: start: 20040101

REACTIONS (2)
  - HYPOACUSIS [None]
  - NEUROLEPTIC MALIGNANT SYNDROME [None]
